FAERS Safety Report 10520614 (Version 2)
Quarter: 2014Q4

REPORT INFORMATION
  Report Type: Spontaneous
  Country: US (occurrence: US)
  Receive Date: 20141015
  Receipt Date: 20141125
  Transmission Date: 20150528
  Serious: No
  Sender: FDA-Public Use
  Company Number: US-009507513-1410USA006859

PATIENT
  Age: 59 Year
  Sex: Female
  Weight: 65.31 kg

DRUGS (5)
  1. BIOTIN [Concomitant]
     Active Substance: BIOTIN
     Indication: ONYCHOMALACIA
     Dosage: 5000 MICROGRAM, UNKNOWN
  2. OXYTROL FOR WOMEN [Suspect]
     Active Substance: OXYBUTYNIN
     Indication: MICTURITION URGENCY
     Dosage: 1 DF, Q4D
     Route: 062
     Dates: start: 20141003, end: 20141019
  3. ATORVASTATIN [Concomitant]
     Active Substance: ATORVASTATIN
     Indication: BLOOD CHOLESTEROL INCREASED
     Dosage: 20 MG, UNKNOWN
  4. FLAXSEED [Concomitant]
     Active Substance: FLAX SEED
     Indication: DRY EYE
     Dosage: 1400 MG, UNKNOWN
  5. LISINOPRIL. [Concomitant]
     Active Substance: LISINOPRIL
     Indication: HYPERTENSION
     Dosage: 20 MG, UNKNOWN

REACTIONS (2)
  - Drug ineffective [Unknown]
  - Drug effect incomplete [Unknown]

NARRATIVE: CASE EVENT DATE: 201410
